FAERS Safety Report 8156211-5 (Version None)
Quarter: 2012Q1

REPORT INFORMATION
  Report Type: 
  Country: None (occurrence: None)
  Receive Date: 20120222
  Receipt Date: 20120217
  Transmission Date: 20120608
  Serious: Yes (Death)
  Sender: FDA-Public Use
  Company Number: KR-MPIJNJ-2012-01117

PATIENT

DRUGS (3)
  1. VELCADE [Suspect]
     Dosage: UNK
     Route: 042
     Dates: start: 20120101
  2. DEXAMETHASONE [Concomitant]
  3. VELCADE [Suspect]
     Indication: PRODUCT USED FOR UNKNOWN INDICATION
     Dosage: UNK
     Route: 042
     Dates: start: 20111201

REACTIONS (2)
  - POSTERIOR REVERSIBLE ENCEPHALOPATHY SYNDROME [None]
  - INFECTION [None]
